FAERS Safety Report 6726754-7 (Version None)
Quarter: 2010Q2

REPORT INFORMATION
  Report Type: 
  Country: None (occurrence: None)
  Receive Date: 20100516
  Receipt Date: 20100502
  Transmission Date: 20101027
  Serious: Yes (Other)
  Sender: FDA-Public Use
  Company Number: US-JNJFOC-20100502506

PATIENT
  Sex: Male

DRUGS (2)
  1. TYLENOL CHILDRENS SUSPENSION UNSPECIFIED [Suspect]
  2. TYLENOL CHILDRENS SUSPENSION UNSPECIFIED [Suspect]
     Indication: DRUG USE FOR UNKNOWN INDICATION

REACTIONS (4)
  - CROUP INFECTIOUS [None]
  - DYSPNOEA [None]
  - OBSTRUCTIVE AIRWAYS DISORDER [None]
  - PRODUCT QUALITY ISSUE [None]
